FAERS Safety Report 4965733-7 (Version None)
Quarter: 2006Q2

REPORT INFORMATION
  Report Type: 
  Country: None (occurrence: None)
  Receive Date: 20060405
  Receipt Date: 20060405
  Transmission Date: 20061013
  Serious: Yes (Hospitalization)
  Sender: FDA-Public Use
  Company Number: None

PATIENT
  Sex: Female
  Weight: 19.6 kg

DRUGS (6)
  1. ONCASPAR [Suspect]
     Indication: ACUTE LYMPHOCYTIC LEUKAEMIA
     Dosage: 1950 UNITS  ONCE IM
     Route: 030
     Dates: start: 20051116, end: 20051116
  2. DEXAMETHASONE [Concomitant]
  3. VINCRISTINE [Concomitant]
  4. DOXORUBICIN HCL [Concomitant]
  5. METHOTREXATE [Concomitant]
  6. ONCASPAR [Concomitant]

REACTIONS (3)
  - DEHYDRATION [None]
  - SENSATION OF HEAVINESS [None]
  - TRANSVERSE SINUS THROMBOSIS [None]
